FAERS Safety Report 20759835 (Version 4)
Quarter: 2023Q1

REPORT INFORMATION
  Report Type: Report from Study
  Country: FR (occurrence: None)
  Receive Date: 20220427
  Receipt Date: 20230124
  Transmission Date: 20230418
  Serious: Yes (Hospitalization)
  Sender: FDA-Public Use
  Company Number: FR-ROCHE-2997277

PATIENT
  Age: 44 Year
  Sex: Male
  Weight: 71 kg

DRUGS (22)
  1. OCRELIZUMAB [Suspect]
     Active Substance: OCRELIZUMAB
     Indication: Progressive multiple sclerosis
     Dosage: AT AN INITIAL DOSE OF TWO 300-MG INFUSIONS SEPARATED BY 14 DAYS (ON DAYS 1 AND 15), AND THEN 600 MG
     Route: 042
     Dates: start: 20190111
  2. BACLOFEN [Concomitant]
     Active Substance: BACLOFEN
     Route: 048
  3. ALFUZOSIN HYDROCHLORIDE [Concomitant]
     Active Substance: ALFUZOSIN HYDROCHLORIDE
     Route: 048
     Dates: start: 20170608
  4. OXYBUTYNIN CHLORIDE [Concomitant]
     Active Substance: OXYBUTYNIN CHLORIDE
     Route: 048
     Dates: start: 2011, end: 20201203
  5. FLUOXETINE [Concomitant]
     Active Substance: FLUOXETINE HYDROCHLORIDE
     Route: 048
  6. ECONAZOLE [Concomitant]
     Active Substance: ECONAZOLE
     Indication: Multiple sclerosis relapse
     Route: 048
     Dates: start: 20200520
  7. TOVIAZ [Concomitant]
     Active Substance: FESOTERODINE FUMARATE
     Indication: Multiple sclerosis relapse
     Route: 048
     Dates: start: 20201203
  8. PFIZER-BIONTECH COVID-19 VACCINE [Concomitant]
     Active Substance: TOZINAMERAN
     Indication: Prophylaxis
     Route: 030
     Dates: start: 20210315, end: 20210315
  9. PFIZER-BIONTECH COVID-19 VACCINE [Concomitant]
     Active Substance: TOZINAMERAN
     Route: 030
     Dates: start: 20210412, end: 20210412
  10. PFIZER-BIONTECH COVID-19 VACCINE [Concomitant]
     Active Substance: TOZINAMERAN
     Route: 030
     Dates: start: 20211025, end: 20211025
  11. METHYLPREDNISOLONE [Concomitant]
     Active Substance: METHYLPREDNISOLONE
     Dosage: 25 /JAN /2019, 02 /JUL /2019, 03/DEC /2019, 16/JUN/2020, 15/DEC/2020, 25/MAY/2021, 08/NOV/2021
     Route: 042
     Dates: start: 20190111, end: 20190111
  12. DEXCHLORPHENIRAMINE [Concomitant]
     Active Substance: DEXCHLORPHENIRAMINE
     Dosage: 25/JAN/2019
     Route: 042
     Dates: start: 20190111, end: 20190111
  13. POLARAMINE [Concomitant]
     Active Substance: DEXCHLORPHENIRAMINE MALEATE
     Dosage: 03/DEC /2019, 16/JUN/2020, 15/DEC/2020,
     Route: 042
     Dates: start: 20191202, end: 20191202
  14. CETIRIZINE [Concomitant]
     Active Substance: CETIRIZINE HYDROCHLORIDE
  15. ACETAMINOPHEN [Concomitant]
     Active Substance: ACETAMINOPHEN
     Dosage: 25/JAN/2019, 02/JUL/2019,03/DEC/2019, 16/JUN/2020, 15/DEC/2020, 25/MAY/2021, 08/NOV/2021
     Route: 048
     Dates: start: 20190111, end: 20190111
  16. CEFTRIAXONE [Concomitant]
     Active Substance: CEFTRIAXONE
     Indication: Urinary tract infection
     Dates: start: 20220114
  17. POLYETHYLENE GLYCOLS [Concomitant]
     Active Substance: POLYETHYLENE GLYCOLS
     Dates: start: 20220120
  18. VESICARE [Concomitant]
     Active Substance: SOLIFENACIN SUCCINATE
     Dates: start: 20220406
  19. POTASSIUM BITARTRATE\SODIUM BICARBONATE [Concomitant]
     Active Substance: POTASSIUM BITARTRATE\SODIUM BICARBONATE
     Dates: start: 20220406
  20. BOTOX [Concomitant]
     Active Substance: ONABOTULINUMTOXINA
     Route: 030
     Dates: start: 20220304, end: 20220304
  21. BOTOX [Concomitant]
     Active Substance: ONABOTULINUMTOXINA
     Route: 030
     Dates: start: 20220912, end: 20220912
  22. ACETAMINOPHEN [Concomitant]
     Active Substance: ACETAMINOPHEN
     Dates: start: 20220323

REACTIONS (2)
  - COVID-19 pneumonia [Recovered/Resolved]
  - Neurological decompensation [Recovered/Resolved with Sequelae]

NARRATIVE: CASE EVENT DATE: 20211231
